FAERS Safety Report 5234829-7 (Version None)
Quarter: 2007Q1

REPORT INFORMATION
  Report Type: 
  Country: None (occurrence: None)
  Receive Date: 20070209
  Receipt Date: 20070129
  Transmission Date: 20070707
  Serious: Yes (Other)
  Sender: FDA-Public Use
  Company Number: AR-PFIZER INC-2007003495

PATIENT
  Age: 58 Year
  Sex: Male

DRUGS (8)
  1. SUTENT [Suspect]
     Indication: RENAL CELL CARCINOMA STAGE UNSPECIFIED
     Dosage: DAILY DOSE:50MG
     Route: 048
  2. SUTENT [Suspect]
  3. FUROSEMIDE [Concomitant]
  4. MEPREDNISONE [Concomitant]
     Dosage: DAILY DOSE:10MG
  5. THEOPHYLLINE [Concomitant]
     Dosage: DAILY DOSE:300MG
  6. SALBUTAMOL [Concomitant]
  7. ENALAPRIL MALEATE [Concomitant]
     Dosage: DAILY DOSE:10MG
     Route: 048
  8. PANTOPRAZOLE SODIUM [Concomitant]
     Dosage: DAILY DOSE:40MG

REACTIONS (12)
  - ALOPECIA [None]
  - BRONCHITIS VIRAL [None]
  - CONSTIPATION [None]
  - DIARRHOEA [None]
  - GLOSSITIS [None]
  - HAEMATOMA [None]
  - PALMAR-PLANTAR ERYTHRODYSAESTHESIA SYNDROME [None]
  - PETECHIAE [None]
  - PHLEBITIS [None]
  - PYREXIA [None]
  - STOMATITIS [None]
  - THROMBOCYTOPENIA [None]
